FAERS Safety Report 20210562 (Version 4)
Quarter: 2022Q2

REPORT INFORMATION
  Report Type: Report from Study
  Country: US (occurrence: US)
  Receive Date: 20211221
  Receipt Date: 20220421
  Transmission Date: 20220721
  Serious: Yes (Hospitalization, Other)
  Sender: FDA-Public Use
  Company Number: US-TAKEDA-2021TUS000706

PATIENT
  Sex: Male

DRUGS (1)
  1. VEDOLIZUMAB [Suspect]
     Active Substance: VEDOLIZUMAB
     Indication: Colitis ulcerative
     Dosage: 300 MILLIGRAM
     Route: 042

REACTIONS (7)
  - Infection [Unknown]
  - Hospitalisation [Unknown]
  - Colitis ulcerative [Recovering/Resolving]
  - Acute kidney injury [Recovering/Resolving]
  - Respiratory distress [Recovering/Resolving]
  - Drug ineffective [Unknown]
  - Product dose omission issue [Unknown]
